FAERS Safety Report 10866575 (Version 1)
Quarter: 2015Q1

REPORT INFORMATION
  Report Type: Report from Study
  Country: DE (occurrence: None)
  Receive Date: 20150220
  Receipt Date: 20150220
  Transmission Date: 20150721
  Serious: Yes (Other)
  Sender: FDA-Public Use
  Company Number: 2015-10622

PATIENT
  Age: 83 Year
  Sex: Female

DRUGS (2)
  1. EYLEA [Suspect]
     Active Substance: AFLIBERCEPT
     Indication: NEOVASCULAR AGE-RELATED MACULAR DEGENERATION
     Dosage: Q2MON, 7 INJECTIONS PRIOR TO THE EVENT
     Route: 031
     Dates: start: 20130718, end: 20140506
  2. FALITHROM (PHENPROCOUMON) [Concomitant]

REACTIONS (3)
  - General physical health deterioration [None]
  - Visual acuity reduced [None]
  - Dementia [None]

NARRATIVE: CASE EVENT DATE: 20150105
